FAERS Safety Report 16039501 (Version 1)
Quarter: 2019Q1

REPORT INFORMATION
  Report Type: Spontaneous
  Country: US (occurrence: US)
  Receive Date: 20190306
  Receipt Date: 20190306
  Transmission Date: 20190418
  Serious: No
  Sender: FDA-Public Use
  Company Number: US-BEH-2019100105

PATIENT
  Age: 75 Year
  Sex: Female
  Weight: 81.63 kg

DRUGS (2)
  1. HIZENTRA [Suspect]
     Active Substance: HUMAN IMMUNOGLOBULIN G
     Dosage: 15 G/75ML, 3 SITES, TOT
     Route: 065
     Dates: start: 20190228, end: 20190228
  2. HIZENTRA [Suspect]
     Active Substance: HUMAN IMMUNOGLOBULIN G
     Indication: IMMUNODEFICIENCY COMMON VARIABLE
     Dosage: 15 G/75ML IN 3 SITES, QW
     Route: 065

REACTIONS (1)
  - Infusion site nodule [Not Recovered/Not Resolved]

NARRATIVE: CASE EVENT DATE: 20190228
